FAERS Safety Report 15661497 (Version 3)
Quarter: 2019Q3

REPORT INFORMATION
  Report Type: Report from Study
  Country: US (occurrence: US)
  Receive Date: 20181127
  Receipt Date: 20190717
  Transmission Date: 20191004
  Serious: Yes (Other)
  Sender: FDA-Public Use
  Company Number: PHEH2018US049059

PATIENT
  Age: 13 Year
  Sex: Male

DRUGS (2)
  1. AFINITOR [Suspect]
     Active Substance: EVEROLIMUS
     Indication: ASTROCYTOMA, LOW GRADE
     Dosage: 2.5 MG, QD
     Route: 048
     Dates: start: 20110706
  2. AFINITOR [Suspect]
     Active Substance: EVEROLIMUS
     Dosage: 2.5 MG ALTERNATING WITH 5 MG EVERY OTHER DAY
     Route: 048

REACTIONS (4)
  - Concomitant disease aggravated [Unknown]
  - Inappropriate schedule of product administration [Unknown]
  - Blood count abnormal [Unknown]
  - Tuberous sclerosis complex [Unknown]

NARRATIVE: CASE EVENT DATE: 20181031
